FAERS Safety Report 5849334-4 (Version None)
Quarter: 2008Q3

REPORT INFORMATION
  Report Type: 
  Country: None (occurrence: None)
  Receive Date: 20080815
  Receipt Date: 20080801
  Transmission Date: 20090109
  Serious: Yes (Hospitalization)
  Sender: FDA-Public Use
  Company Number: 2008S1014067

PATIENT
  Age: 52 Year
  Sex: Female

DRUGS (3)
  1. BYSTOLIC [Suspect]
     Indication: BLOOD PRESSURE FLUCTUATION
     Dosage: 5 MG; X1; ORAL; 5 MG; XQ; ORAL; 2.5 MG; X; ORAL
     Route: 048
     Dates: start: 20080715, end: 20080715
  2. BYSTOLIC [Suspect]
     Indication: BLOOD PRESSURE FLUCTUATION
     Dosage: 5 MG; X1; ORAL; 5 MG; XQ; ORAL; 2.5 MG; X; ORAL
     Route: 048
     Dates: start: 20080720, end: 20080720
  3. BYSTOLIC [Suspect]
     Indication: BLOOD PRESSURE FLUCTUATION
     Dosage: 5 MG; X1; ORAL; 5 MG; XQ; ORAL; 2.5 MG; X; ORAL
     Route: 048
     Dates: start: 20080724, end: 20080724

REACTIONS (2)
  - CEREBROVASCULAR ACCIDENT [None]
  - TRANSIENT ISCHAEMIC ATTACK [None]
